FAERS Safety Report 12869623 (Version 5)
Quarter: 2018Q3

REPORT INFORMATION
  Report Type: Report from Study
  Country: US (occurrence: US)
  Receive Date: 20161020
  Receipt Date: 20180719
  Transmission Date: 20181010
  Serious: No
  Sender: FDA-Public Use
  Company Number: US-AMGEN-USASL2016112423

PATIENT
  Age: 60 Year
  Sex: Male

DRUGS (2)
  1. REPATHA [Suspect]
     Active Substance: EVOLOCUMAB
     Indication: MYOCARDIAL INFARCTION
     Dosage: 140 MG, EVERY 15 DAYS
     Route: 065
     Dates: start: 20160808
  2. REPATHA [Suspect]
     Active Substance: EVOLOCUMAB
     Dosage: 140 MG, Q2WK
     Route: 065

REACTIONS (13)
  - Pain [Unknown]
  - Fatigue [Unknown]
  - Restless legs syndrome [Unknown]
  - Rhinorrhoea [Unknown]
  - Sluggishness [Unknown]
  - Irritability [Unknown]
  - Insomnia [Unknown]
  - Arthralgia [Unknown]
  - Throat irritation [Recovered/Resolved]
  - Feeling abnormal [Unknown]
  - Nervousness [Unknown]
  - Oropharyngeal pain [Recovered/Resolved]
  - Injection site pain [Recovered/Resolved]

NARRATIVE: CASE EVENT DATE: 201608
